FAERS Safety Report 6050059-3 (Version None)
Quarter: 2009Q1

REPORT INFORMATION
  Report Type: 
  Country: None (occurrence: None)
  Receive Date: 20090121
  Receipt Date: 20090108
  Transmission Date: 20090719
  Serious: No
  Sender: FDA-Public Use
  Company Number: SPI200800595

PATIENT
  Age: 56 Year
  Sex: Female
  Weight: 56.2 kg

DRUGS (2)
  1. AMITIZA [Suspect]
     Indication: CONSTIPATION
     Dosage: 24MCG, BID, ORAL
     Route: 048
     Dates: start: 20081203, end: 20081205
  2. VAGISIL (BENZOCAINE, RESORCINOL) [Concomitant]

REACTIONS (2)
  - CHEST DISCOMFORT [None]
  - DYSPNOEA [None]
